FAERS Safety Report 8646061 (Version 3)
Quarter: 2014Q2

REPORT INFORMATION
  Report Type: Report from Study
  Country: US (occurrence: US)
  Receive Date: 20120702
  Receipt Date: 20140403
  Transmission Date: 20141212
  Serious: Yes (Hospitalization)
  Sender: FDA-Public Use
  Company Number: US-ALEXION PHARMACEUTICALS INC.-A201201236

PATIENT
  Sex: 0

DRUGS (10)
  1. ECULIZUMAB [Suspect]
     Indication: HAEMOLYTIC URAEMIC SYNDROME
     Dosage: UNK, QMONTH
     Route: 042
  2. LOSARTAN [Concomitant]
     Dosage: 50 MG, QD
     Route: 048
  3. LABETALOL [Concomitant]
     Dosage: 200 MG, BID
     Route: 048
  4. AMLODIPINE [Concomitant]
     Dosage: 10 MG, BID
     Route: 048
  5. RENVELA [Concomitant]
     Dosage: 800 MG, BID
     Route: 065
  6. FERROUS SULFATE [Concomitant]
     Dosage: 325 MG, BID
     Route: 048
  7. LISINOPRIL [Concomitant]
     Dosage: 5 MG, QD
     Route: 048
  8. CALCITRIOL [Concomitant]
     Dosage: 0.25 ?G, QD
     Route: 048
  9. NEPHRO-VITE [Concomitant]
     Dosage: UNK, 1/2 CAPSULE QD
     Route: 048
  10. EPOETIN [Concomitant]
     Dosage: 1500 MG, UNK
     Route: 058

REACTIONS (2)
  - Pneumonia [Recovered/Resolved]
  - Blood pressure diastolic increased [Not Recovered/Not Resolved]
